FAERS Safety Report 12315081 (Version 4)
Quarter: 2016Q2

REPORT INFORMATION
  Report Type: Spontaneous
  Country: US (occurrence: US)
  Receive Date: 20160428
  Receipt Date: 20160608
  Transmission Date: 20160815
  Serious: No
  Sender: FDA-Public Use
  Company Number: US-PFIZER INC-2016236064

PATIENT

DRUGS (3)
  1. CYTOMEL [Suspect]
     Active Substance: LIOTHYRONINE SODIUM
     Dosage: UNK
  2. SYNTHROID [Suspect]
     Active Substance: LEVOTHYROXINE SODIUM
  3. LEVOTHYROXINE SODIUM. [Suspect]
     Active Substance: LEVOTHYROXINE SODIUM

REACTIONS (5)
  - Thyroxine abnormal [Unknown]
  - Tri-iodothyronine abnormal [Unknown]
  - Asthenia [Unknown]
  - Discomfort [Unknown]
  - Swollen tongue [Unknown]
